FAERS Safety Report 13574227 (Version 1)
Quarter: 2017Q2

REPORT INFORMATION
  Report Type: Spontaneous
  Country: US (occurrence: US)
  Receive Date: 20170523
  Receipt Date: 20170523
  Transmission Date: 20170830
  Serious: No
  Sender: FDA-Public Use
  Company Number: US-ELI_LILLY_AND_COMPANY-US201705007656

PATIENT
  Age: 74 Year
  Sex: Female

DRUGS (1)
  1. HUMALOG [Suspect]
     Active Substance: INSULIN LISPRO
     Indication: TYPE 2 DIABETES MELLITUS
     Dosage: 8 U, PRN WITH MEALS
     Route: 058

REACTIONS (7)
  - Malaise [Unknown]
  - Feeling abnormal [Unknown]
  - Nervousness [Unknown]
  - Depressed mood [Unknown]
  - Blood glucose increased [Unknown]
  - Tremor [Unknown]
  - Stress [Unknown]

NARRATIVE: CASE EVENT DATE: 20170515
